FAERS Safety Report 6975386-4 (Version None)
Quarter: 2010Q3

REPORT INFORMATION
  Report Type: 
  Country: None (occurrence: None)
  Receive Date: 20100908
  Receipt Date: 20100811
  Transmission Date: 20110219
  Serious: Yes (Other)
  Sender: FDA-Public Use
  Company Number: 20109120

PATIENT
  Sex: Male

DRUGS (1)
  1. LIORESAL [Suspect]
     Indication: MUSCLE SPASTICITY
     Dosage: SEE B5 MCG, DAILY, INTRATHECAL
     Route: 037

REACTIONS (6)
  - CONDITION AGGRAVATED [None]
  - CONVULSION [None]
  - IMPLANT SITE SWELLING [None]
  - INFECTION [None]
  - MUSCLE SPASTICITY [None]
  - PYREXIA [None]
